FAERS Safety Report 8120603-0 (Version None)
Quarter: 2012Q1

REPORT INFORMATION
  Report Type: 
  Country: None (occurrence: None)
  Receive Date: 20120207
  Receipt Date: 20120130
  Transmission Date: 20120608
  Serious: Yes (Hospitalization)
  Sender: FDA-Public Use
  Company Number: FR-PFIZER INC-2010028524

PATIENT
  Age: 61 Year
  Sex: Male

DRUGS (11)
  1. TEGRETOL [Concomitant]
     Dosage: 200 MG, UNK
  2. ASPIRIN [Concomitant]
     Dosage: 75 MG, UNK
  3. ESIDRIX [Interacting]
     Dosage: 25 MG, DAILY
  4. INSULIN [Concomitant]
  5. AMLODIPINE BESYLATE [Suspect]
     Dosage: 10 MG, DAILY
  6. NEBIVOLOL HCL [Interacting]
     Dosage: 5 MG, DAILY
  7. CRESTOR [Concomitant]
     Dosage: 10 MG, UNK
  8. GLUCOPHAGE [Concomitant]
     Dosage: 500 MG, UNK
  9. PRAZOSIN HCL [Interacting]
     Dosage: UNK
     Route: 048
     Dates: end: 20091218
  10. RAMIPRIL [Interacting]
     Dosage: 10 MG, DAILY
  11. NEXIUM [Concomitant]
     Dosage: 20 MG, UNK

REACTIONS (4)
  - DRUG INTERACTION [None]
  - ORTHOSTATIC HYPOTENSION [None]
  - LOSS OF CONSCIOUSNESS [None]
  - MALAISE [None]
